FAERS Safety Report 7409432 (Version 3)
Quarter: 2013Q3

REPORT INFORMATION
  Report Type: Report from Study
  Country: JP (occurrence: JP)
  Receive Date: 20100604
  Receipt Date: 20130920
  Transmission Date: 20140515
  Serious: Yes (Hospitalization, Other)
  Sender: FDA-Public Use
  Company Number: JP-SHIRE-SPV1-2010-01019

PATIENT
  Age: 75 Year
  Sex: Female

DRUGS (16)
  1. 405 (LANTHANUM CARBONATE) [Suspect]
     Indication: HYPERPHOSPHATAEMIA
     Dosage: 750 MG, 1X/DAY:QD (IMMEDIATELY AFTER MEAL)
     Route: 048
     Dates: start: 20090420, end: 20090423
  2. 405 (LANTHANUM CARBONATE) [Suspect]
     Dosage: 250 MG, 1X/DAY:QD (IMMEDIATELY AFTER MEAL)
     Route: 048
     Dates: start: 20090424, end: 20091222
  3. 405 (LANTHANUM CARBONATE) [Suspect]
     Dosage: 250 MG, 1X/DAY:QD (IMMEDIATELY AFTER MEAL)
     Route: 048
     Dates: start: 20091229
  4. ONEALFA [Concomitant]
     Indication: PRODUCT USED FOR UNKNOWN INDICATION
     Dosage: 0.5 ?G, OTHER (ON DIALYSIS DAYS)
     Route: 048
     Dates: end: 20120604
  5. ONEALFA [Concomitant]
     Dosage: 0.25 ?G, OTHER (ON NON-DIALYSIS DAYS)
     Route: 048
     Dates: end: 20120604
  6. BAYASPIRIN [Concomitant]
     Indication: PRODUCT USED FOR UNKNOWN INDICATION
     Dosage: 100 MG, UNKNOWN
     Route: 048
  7. EVISTA [Concomitant]
     Indication: PRODUCT USED FOR UNKNOWN INDICATION
     Dosage: 60 MG, UNKNOWN
     Route: 048
  8. NORVASC [Concomitant]
     Indication: PRODUCT USED FOR UNKNOWN INDICATION
     Dosage: 5 MG, UNKNOWN
     Route: 048
  9. MUCOSTA [Concomitant]
     Indication: PRODUCT USED FOR UNKNOWN INDICATION
     Dosage: 300 MG, UNKNOWN
     Route: 048
  10. PROTECADIN [Concomitant]
     Indication: PRODUCT USED FOR UNKNOWN INDICATION
     Dosage: 10 MG, UNKNOWN
     Route: 048
  11. LENDORMIN [Concomitant]
     Indication: PRODUCT USED FOR UNKNOWN INDICATION
     Dosage: .25 MG, UNKNOWN
     Route: 048
  12. NESP [Concomitant]
     Indication: PRODUCT USED FOR UNKNOWN INDICATION
     Dosage: 50 UG, UNKNOWN
     Route: 042
  13. KIKLIN [Concomitant]
     Indication: HYPERPHOSPHATAEMIA
     Dosage: 1500 MG, UNKNOWN
     Route: 048
     Dates: start: 20130405
  14. FULSTAN [Concomitant]
     Indication: PRODUCT USED FOR UNKNOWN INDICATION
     Dosage: 0.15 ?G, UNKNOWN
     Route: 048
     Dates: start: 20120602
  15. CALTAN [Concomitant]
     Indication: HYPERPHOSPHATAEMIA
     Dosage: 1500 MG, UNKNOWN
     Route: 048
     Dates: end: 20091026
  16. LACTIC ACID [Concomitant]
     Indication: ENTEROCOLITIS
     Dosage: UNK, UNKNOWN
     Route: 065
     Dates: start: 20121102

REACTIONS (6)
  - Subdural haematoma [Recovered/Resolved]
  - Infected cyst [Recovering/Resolving]
  - Shunt malfunction [Recovering/Resolving]
  - Device related infection [Recovering/Resolving]
  - Ankle fracture [Recovering/Resolving]
  - Pyrexia [Recovering/Resolving]
